FAERS Safety Report 14270439 (Version 2)
Quarter: 2018Q1

REPORT INFORMATION
  Report Type: Spontaneous
  Country: DE (occurrence: DE)
  Receive Date: 20171211
  Receipt Date: 20180329
  Transmission Date: 20180508
  Serious: Yes (Hospitalization, Other)
  Sender: FDA-Public Use
  Company Number: DE-OTSUKA-2016_007276

PATIENT
  Age: 41 Year
  Sex: Female

DRUGS (3)
  1. OLANZAPIN [Suspect]
     Active Substance: OLANZAPINE
     Indication: SCHIZOPHRENIA
     Dosage: 20 MG, UNK
     Route: 048
     Dates: start: 20151216, end: 20160111
  2. LEVOMETHADONE [Concomitant]
     Active Substance: LEVOMETHADONE
     Indication: DRUG DEPENDENCE
     Dosage: 45 MG, UNK
     Route: 065
     Dates: start: 20151229
  3. ARIPIPRAZOLE. [Suspect]
     Active Substance: ARIPIPRAZOLE
     Indication: SCHIZOPHRENIA
     Dosage: 10 MG, UNK
     Route: 048
     Dates: start: 20151221

REACTIONS (1)
  - Cerebral infarction [Not Recovered/Not Resolved]

NARRATIVE: CASE EVENT DATE: 20160104
